FAERS Safety Report 24382363 (Version 3)
Quarter: 2024Q4

REPORT INFORMATION
  Report Type: Spontaneous
  Country: FR (occurrence: FR)
  Receive Date: 20241001
  Receipt Date: 20241211
  Transmission Date: 20250115
  Serious: Yes (Other)
  Sender: ROCHE
  Company Number: FR-ROCHE-10000091454

PATIENT
  Age: 71 Year
  Sex: Female

DRUGS (2)
  1. MABTHERA [Suspect]
     Active Substance: RITUXIMAB
     Indication: Cold type haemolytic anaemia
     Dosage: 1400 MG/11.7 ML 1
     Route: 058
     Dates: start: 20231204, end: 20240422
  2. MABTHERA [Suspect]
     Active Substance: RITUXIMAB
     Dosage: 1400 MG/11.7 ML 1
     Route: 058
     Dates: start: 20231204, end: 20240422

REACTIONS (9)
  - Off label use [Unknown]
  - Ear infection [Unknown]
  - Sinusitis [Unknown]
  - Deafness [Unknown]
  - Erythema [Unknown]
  - Rash [Unknown]
  - Oral mucosal eruption [Unknown]
  - Tympanic membrane perforation [Unknown]
  - Musculoskeletal stiffness [Not Recovered/Not Resolved]
